FAERS Safety Report 22166988 (Version 1)
Quarter: 2023Q2

REPORT INFORMATION
  Report Type: Spontaneous
  Country: GB (occurrence: GB)
  Receive Date: 20230403
  Receipt Date: 20230403
  Transmission Date: 20230722
  Serious: Yes (Other)
  Sender: FDA-Public Use
  Company Number: None

PATIENT
  Age: 28 Year
  Sex: Female
  Weight: 53 kg

DRUGS (1)
  1. DOTAREM [Suspect]
     Active Substance: GADOTERATE MEGLUMINE
     Indication: Scan with contrast
     Dosage: 10
     Route: 065
     Dates: start: 20230313, end: 20230313

REACTIONS (5)
  - Rash [Recovered/Resolved]
  - Rash erythematous [Recovered/Resolved]
  - Throat tightness [Unknown]
  - Chest discomfort [Unknown]
  - Contrast media reaction [Recovered/Resolved]

NARRATIVE: CASE EVENT DATE: 20230313
